FAERS Safety Report 9455347 (Version 1)
Quarter: 2013Q3

REPORT INFORMATION
  Report Type: Spontaneous
  Country: US (occurrence: US)
  Receive Date: 20130813
  Receipt Date: 20130813
  Transmission Date: 20140515
  Serious: Yes (Other)
  Sender: FDA-Public Use
  Company Number: PHEH2013US017009

PATIENT
  Sex: Female

DRUGS (8)
  1. TEKTURNA [Suspect]
  2. NORVASC [Concomitant]
     Dosage: 5 MG, QD
  3. COREG [Concomitant]
     Dosage: 25 MG, BID
  4. PLAVIX [Concomitant]
     Dosage: 75 MG, QD
  5. CRESTOR [Concomitant]
     Dosage: 10 MG, QD
  6. SPIRONOLACTONE [Concomitant]
     Dosage: 25 MG, BID
  7. HYZAAR [Concomitant]
  8. BUMEX [Concomitant]
     Dosage: 2 MG, QD

REACTIONS (7)
  - Cerebrovascular accident [Unknown]
  - Cardiomyopathy [Unknown]
  - Diabetes mellitus [Unknown]
  - Hyperlipidaemia [Unknown]
  - Hypertension [Unknown]
  - Renal failure acute [Unknown]
  - Gastrooesophageal reflux disease [Unknown]
